FAERS Safety Report 5799575-X (Version None)
Quarter: 2008Q3

REPORT INFORMATION
  Report Type: 
  Country: None (occurrence: None)
  Receive Date: 20080701
  Receipt Date: 20080701
  Transmission Date: 20090109
  Serious: Yes (Hospitalization, Disabling)
  Sender: FDA-Public Use
  Company Number: None

PATIENT
  Age: 76 Year
  Sex: Female
  Weight: 74.8435 kg

DRUGS (1)
  1. OSMOPREP [Suspect]

REACTIONS (1)
  - CARDIAC FIBRILLATION [None]
